FAERS Safety Report 9034720 (Version 1)
Quarter: 2013Q1

REPORT INFORMATION
  Report Type: Report from Study
  Country: DE (occurrence: DE)
  Receive Date: 20130128
  Receipt Date: 20130128
  Transmission Date: 20140127
  Serious: Yes (Other)
  Sender: FDA-Public Use
  Company Number: DE-GLAXOSMITHKLINE-B0862798A

PATIENT
  Sex: Female
  Weight: 62.5 kg

DRUGS (4)
  1. LAPATINIB [Suspect]
     Indication: BREAST NEOPLASM
     Dosage: 750MG PER DAY
     Route: 048
     Dates: start: 20120925
  2. PACLITAXEL [Suspect]
     Indication: BREAST NEOPLASM
     Dosage: 139MG WEEKLY
     Route: 042
     Dates: start: 20120925
  3. MYOCET [Suspect]
     Indication: BREAST NEOPLASM
     Dosage: 35MG WEEKLY
     Route: 042
     Dates: start: 20120925
  4. HERCEPTIN [Suspect]
     Indication: BREAST NEOPLASM
     Dosage: 373MG EVERY 3 WEEKS
     Route: 042
     Dates: start: 20120925

REACTIONS (1)
  - Palmar-plantar erythrodysaesthesia syndrome [Recovered/Resolved]
